FAERS Safety Report 5415179-2 (Version None)
Quarter: 2007Q3

REPORT INFORMATION
  Report Type: 
  Country: None (occurrence: None)
  Receive Date: 20070815
  Receipt Date: 20070713
  Transmission Date: 20080115
  Serious: No
  Sender: FDA-Public Use
  Company Number: A0663986A

PATIENT
  Age: 73 Year
  Sex: Male

DRUGS (4)
  1. COREG CR [Suspect]
     Dosage: 10MG PER DAY
     Route: 048
     Dates: start: 20070601
  2. HYZAAR [Concomitant]
  3. PLAVIX [Concomitant]
  4. ZETIA [Concomitant]

REACTIONS (1)
  - NODULE [None]
